FAERS Safety Report 6030389-1 (Version None)
Quarter: 2009Q1

REPORT INFORMATION
  Report Type: 
  Country: None (occurrence: None)
  Receive Date: 20090107
  Receipt Date: 20080731
  Transmission Date: 20090719
  Serious: No
  Sender: FDA-Public Use
  Company Number: US-BAYER-200813253BCC

PATIENT
  Age: 54 Year
  Sex: Female
  Weight: 70 kg

DRUGS (4)
  1. ALEVE (CAPLET) [Suspect]
     Indication: BACK PAIN
     Route: 048
     Dates: start: 20080701
  2. METOPROLOL [Concomitant]
  3. FLUOXETINE [Concomitant]
  4. ESTRADIOL [Concomitant]

REACTIONS (1)
  - SOMNOLENCE [None]
